FAERS Safety Report 6610844-3 (Version None)
Quarter: 2010Q1

REPORT INFORMATION
  Report Type: 
  Country: None (occurrence: None)
  Receive Date: 20100219
  Receipt Date: 20100208
  Transmission Date: 20100710
  Serious: Yes (Other)
  Sender: FDA-Public Use
  Company Number: IND1-AU-2010-0011

PATIENT
  Sex: Male

DRUGS (7)
  1. INDOMETHACIN [Suspect]
     Indication: NEPHROPATHY
  2. RITONAVIR [Suspect]
     Indication: RENAL FAILURE ACUTE
  3. GELATIN (PLACEBO) [Suspect]
  4. IRBESARTAN [Suspect]
  5. PREZISTA [Suspect]
     Dosage: PER ORAL
     Route: 048
  6. RALTEGRAVIR [Suspect]
  7. INTELENCE [Concomitant]

REACTIONS (2)
  - NEPHROPATHY [None]
  - RENAL FAILURE ACUTE [None]
